FAERS Safety Report 18187315 (Version 1)
Quarter: 2020Q3

REPORT INFORMATION
  Report Type: Spontaneous
  Country: US (occurrence: US)
  Receive Date: 20200824
  Receipt Date: 20200824
  Transmission Date: 20201103
  Serious: Yes (Hospitalization)
  Sender: FDA-Public Use
  Company Number: None

PATIENT
  Sex: Female

DRUGS (8)
  1. LISINOPRIL. [Concomitant]
     Active Substance: LISINOPRIL
  2. FOLIC ACID. [Concomitant]
     Active Substance: FOLIC ACID
  3. STIMULANT [Concomitant]
     Active Substance: UNSPECIFIED INGREDIENT
  4. METHOTREXATE. [Concomitant]
     Active Substance: METHOTREXATE
  5. CELECOXIB. [Concomitant]
     Active Substance: CELECOXIB
  6. ORENCIA [Suspect]
     Active Substance: ABATACEPT
     Indication: RHEUMATOID ARTHRITIS
     Dosage: ?          OTHER FREQUENCY:WEEKLY;?
     Route: 058
     Dates: start: 20200423
  7. VENLAFAXINE [Concomitant]
     Active Substance: VENLAFAXINE HYDROCHLORIDE
  8. ACETAMIN [Concomitant]
     Active Substance: ACETAMINOPHEN

REACTIONS (3)
  - Hip surgery [None]
  - Condition aggravated [None]
  - Therapy interrupted [None]
